FAERS Safety Report 25643649 (Version 1)
Quarter: 2025Q3

REPORT INFORMATION
  Report Type: Spontaneous
  Country: US (occurrence: None)
  Receive Date: 20250802
  Receipt Date: 20250802
  Transmission Date: 20251020
  Serious: Yes (Disabling)
  Sender: FDA-CTU
  Company Number: None

PATIENT
  Age: 62 Year
  Sex: Female
  Weight: 60.75 kg

DRUGS (12)
  1. GABAPENTIN [Suspect]
     Active Substance: GABAPENTIN
     Indication: Neuralgia
     Dosage: OTHER QUANTITY : 1 CAPSULE(S);?FREQUENCY : AT BEDTIME;?
     Route: 048
     Dates: start: 20241212, end: 20250704
  2. MELOXICAM [Concomitant]
     Active Substance: MELOXICAM
  3. SINGULAIR [Concomitant]
     Active Substance: MONTELUKAST SODIUM
  4. FLONASE [Concomitant]
     Active Substance: FLUTICASONE PROPIONATE
  5. TIZANIDINE [Concomitant]
     Active Substance: TIZANIDINE
  6. Osetobiofex [Concomitant]
  7. Vitamin Shop Multivitamin Immunity Support [Concomitant]
  8. VITAMIN B COMPLEX [Concomitant]
     Active Substance: CYANOCOBALAMIN\DEXPANTHENOL\NIACINAMIDE\PYRIDOXINE HYDROCHLORIDE\RIBOFLAVIN 5^-PHOSPHATE SODIUM\THIA
  9. VITAMIN D [Concomitant]
     Active Substance: VITAMIN D NOS
  10. JWH-018 [Concomitant]
     Active Substance: JWH-018
  11. MINERALS\VITAMINS [Concomitant]
     Active Substance: MINERALS\VITAMINS
  12. MAGNESIUM CITRATE [Concomitant]
     Active Substance: MAGNESIUM CITRATE

REACTIONS (7)
  - Paraesthesia [None]
  - Burning sensation [None]
  - Gait disturbance [None]
  - Withdrawal syndrome [None]
  - Vitreous floaters [None]
  - Condition aggravated [None]
  - Weight increased [None]

NARRATIVE: CASE EVENT DATE: 20250404
